FAERS Safety Report 5620120-3 (Version None)
Quarter: 2008Q1

REPORT INFORMATION
  Report Type: 
  Country: None (occurrence: None)
  Receive Date: 20080208
  Receipt Date: 20080125
  Transmission Date: 20080703
  Serious: Yes (Hospitalization)
  Sender: FDA-Public Use
  Company Number: GB-GENENTECH-255377

PATIENT
  Sex: Male

DRUGS (5)
  1. BEVACIZUMAB [Suspect]
     Indication: COLON CANCER
     Dosage: 546 UNIT, Q3W
     Route: 042
     Dates: start: 20070823, end: 20071227
  2. CAPECITABINE [Suspect]
     Indication: COLON CANCER
     Dosage: 2 UNK, QD
     Route: 048
     Dates: start: 20070823, end: 20071227
  3. RAMIPRIL [Suspect]
     Indication: HYPERTENSION
     Dosage: 10 MG, QD
     Route: 048
  4. DILTIAZEM [Suspect]
     Indication: ARRHYTHMIA
     Dosage: 180 MG, QD
     Route: 048
  5. ADCAL-D3 [Suspect]
     Indication: DRUG USE FOR UNKNOWN INDICATION
     Route: 048

REACTIONS (1)
  - RENAL FAILURE [None]
